FAERS Safety Report 10187694 (Version 2)
Quarter: 2019Q4

REPORT INFORMATION
  Report Type: Report from Study
  Country: US (occurrence: US)
  Receive Date: 20140522
  Receipt Date: 20191014
  Transmission Date: 20200122
  Serious: Yes (Other)
  Sender: FDA-Public Use
  Company Number: US-SANOFI-AVENTIS-2013SA088741

PATIENT
  Age: 72 Year
  Sex: Male

DRUGS (2)
  1. INSULIN GLARGINE [Suspect]
     Active Substance: INSULIN GLARGINE
     Indication: TYPE 2 DIABETES MELLITUS
     Dosage: 18 DF, QD
     Route: 051
  2. INSULIN GLARGINE [Suspect]
     Active Substance: INSULIN GLARGINE
     Dosage: IN THE EVENING-16 U, QD
     Route: 058
     Dates: start: 2005

REACTIONS (4)
  - Wrong technique in product usage process [Unknown]
  - Paralysis [Unknown]
  - Cerebrovascular accident [Unknown]
  - Gastric perforation [Unknown]

NARRATIVE: CASE EVENT DATE: 20190604
